FAERS Safety Report 24814116 (Version 11)
Quarter: 2025Q2

REPORT INFORMATION
  Report Type: Report from Study
  Country: US (occurrence: US)
  Receive Date: 20250107
  Receipt Date: 20250417
  Transmission Date: 20250717
  Serious: Yes (Hospitalization)
  Sender: TAKEDA
  Company Number: US-TAKEDA-2024TUS006715

PATIENT
  Age: 44 Year
  Sex: Female

DRUGS (9)
  1. LANADELUMAB [Suspect]
     Active Substance: LANADELUMAB
     Indication: Immune system disorder
     Dosage: 300 MILLIGRAM, Q2WEEKS
     Dates: start: 202401
  2. LANADELUMAB [Suspect]
     Active Substance: LANADELUMAB
  3. LANADELUMAB [Suspect]
     Active Substance: LANADELUMAB
  4. BERINERT [Suspect]
     Active Substance: HUMAN C1-ESTERASE INHIBITOR
     Indication: Hereditary angioedema
  5. EPINEPHRINE [Concomitant]
     Active Substance: EPINEPHRINE
  6. HEPARIN LOCK FLUSH [Concomitant]
     Active Substance: HEPARIN SODIUM
  7. LIDOCAINE\PRILOCAINE [Concomitant]
     Active Substance: LIDOCAINE\PRILOCAINE
  8. SODIUM CHLORIDE [Concomitant]
     Active Substance: SODIUM CHLORIDE
  9. SODIUM CHLORIDE [Concomitant]
     Active Substance: SODIUM CHLORIDE

REACTIONS (19)
  - Hereditary angioedema [Recovered/Resolved]
  - Weight decreased [Unknown]
  - Malaise [Unknown]
  - Poor venous access [Unknown]
  - Stress [Unknown]
  - Weight increased [Unknown]
  - Endometriosis [Unknown]
  - Bladder disorder [Unknown]
  - Fatigue [Unknown]
  - Irritability [Unknown]
  - Device related infection [Unknown]
  - Drug ineffective [Unknown]
  - Aggression [Unknown]
  - Depression [Unknown]
  - Agitation [Unknown]
  - Catheter site injury [Unknown]
  - Insurance issue [Unknown]
  - Device use issue [Unknown]
  - Migraine [Unknown]

NARRATIVE: CASE EVENT DATE: 20240115
